FAERS Safety Report 7161807-3 (Version None)
Quarter: 2010Q4

REPORT INFORMATION
  Report Type: 
  Country: None (occurrence: None)
  Receive Date: 20101126
  Receipt Date: 20101119
  Transmission Date: 20110411
  Serious: Yes (Death)
  Sender: FDA-Public Use
  Company Number: AECAN201000425

PATIENT
  Age: 67 Year
  Sex: Male
  Weight: 146.3 kg

DRUGS (2)
  1. ALBUMINAR-25 [Suspect]
     Indication: RENAL FAILURE ACUTE
     Dosage: 6.25 GM TOTAL; IV
     Route: 042
     Dates: start: 20101001, end: 20101108
  2. TAZOCIN [Concomitant]

REACTIONS (5)
  - BODY TEMPERATURE INCREASED [None]
  - HYPOTENSION [None]
  - INFUSION RELATED REACTION [None]
  - OXYGEN SATURATION DECREASED [None]
  - VENA CAVA THROMBOSIS [None]
